FAERS Safety Report 7388435-9 (Version None)
Quarter: 2011Q1

REPORT INFORMATION
  Report Type: 
  Country: None (occurrence: None)
  Receive Date: 20110324
  Receipt Date: 20110310
  Transmission Date: 20110831
  Serious: Yes (Hospitalization, Other)
  Sender: FDA-Public Use
  Company Number: 20110189

PATIENT
  Age: 49 Year
  Sex: Female

DRUGS (14)
  1. FENTANYL [Concomitant]
  2. FLUVOXAMINE [Concomitant]
  3. PROPOFOL [Concomitant]
  4. METHYLENE BLUE INJECTION, USP (0310-10) (METHYLENE BLUE) 10 MG/ML [Suspect]
     Indication: HYPOTENSION
     Dosage: 1 MG/KG X 2 DOSES - 2 MG/KG INTRAVENOUS
     Route: 042
  5. MDAZOLAM [Concomitant]
  6. SEROQUEL [Concomitant]
  7. SEVOFLURANE [Concomitant]
  8. ROCURONIUM [Concomitant]
  9. PHENYLEPHRINE HCL [Concomitant]
  10. PAROXETINE [Concomitant]
  11. CLONAZEPAM [Concomitant]
  12. DIAZEPAM [Concomitant]
  13. VASOPRESSIN [Concomitant]
  14. NOREPINEPHERINE [Concomitant]

REACTIONS (4)
  - SEROTONIN SYNDROME [None]
  - OFF LABEL USE [None]
  - TOXIC ENCEPHALOPATHY [None]
  - DRUG INTERACTION [None]
